FAERS Safety Report 8012645-0 (Version None)
Quarter: 2011Q4

REPORT INFORMATION
  Report Type: 
  Country: None (occurrence: None)
  Receive Date: 20111222
  Receipt Date: 20111212
  Transmission Date: 20120403
  Serious: Yes (Hospitalization)
  Sender: FDA-Public Use
  Company Number: DAV-AE-AMO-11-019

PATIENT
  Age: 34 Year
  Sex: Female

DRUGS (1)
  1. AMOXICILLIN [Suspect]
     Indication: DENTAL OPERATION
     Dosage: 1,000 MG. 2X/DAY
     Dates: start: 20070220

REACTIONS (3)
  - HEPATITIS CHOLESTATIC [None]
  - BILIARY CIRRHOSIS PRIMARY [None]
  - CHOLANGITIS [None]
